FAERS Safety Report 6563029-3 (Version None)
Quarter: 2010Q1

REPORT INFORMATION
  Report Type: 
  Country: None (occurrence: None)
  Receive Date: 20100130
  Receipt Date: 20091202
  Transmission Date: 20100710
  Serious: No
  Sender: FDA-Public Use
  Company Number: US-ABBOTT-09P-163-0611714-00

PATIENT
  Sex: Female
  Weight: 90.8 kg

DRUGS (11)
  1. HUMIRA [Suspect]
     Indication: RHEUMATOID ARTHRITIS
     Dates: start: 20080101, end: 20091101
  2. HUMIRA [Suspect]
     Dates: start: 20091101, end: 20091124
  3. HUMIRA [Suspect]
     Dates: start: 20091201
  4. METHOTREXATE [Concomitant]
     Indication: RHEUMATOID ARTHRITIS
  5. GLYBURIDE [Concomitant]
     Indication: DIABETES MELLITUS
  6. HYDROCODONE BITARTRATE AND ACETAMINOPHEN [Concomitant]
     Indication: PAIN
  7. HYDROXYZINE [Concomitant]
     Indication: ANXIOLYTIC THERAPY
  8. AMITRIPTYLINE HCL [Concomitant]
     Indication: MUSCULOSKELETAL PAIN
  9. AMITRIPTYLINE HCL [Concomitant]
     Indication: INSOMNIA
  10. AMLODIPINE BESYLATE AND BENAZEPRIL HCL [Concomitant]
     Indication: HYPERTENSION
  11. JANUMET [Concomitant]
     Indication: DIABETES MELLITUS

REACTIONS (2)
  - NASOPHARYNGITIS [None]
  - OROPHARYNGEAL PAIN [None]
